FAERS Safety Report 10583211 (Version 5)
Quarter: 2014Q4

REPORT INFORMATION
  Report Type: Spontaneous
  Country: IT (occurrence: IT)
  Receive Date: 20141114
  Receipt Date: 20141128
  Transmission Date: 20150529
  Serious: Yes (Hospitalization)
  Sender: FDA-Public Use
  Company Number: IT-AUROBINDO-AUR-APL-2014-11837

PATIENT
  Age: 38 Year
  Sex: Female

DRUGS (5)
  1. DELORAZEPAM [Suspect]
     Active Substance: DELORAZEPAM
     Indication: DEPRESSION
     Dosage: UNK
     Route: 048
     Dates: start: 20131001
  2. DELORAZEPAM [Suspect]
     Active Substance: DELORAZEPAM
     Dosage: 10 G, TOTAL, UNK
     Route: 048
     Dates: start: 20131104, end: 20141104
  3. MIRTAZAPINE. [Suspect]
     Active Substance: MIRTAZAPINE
     Dosage: 450 MG, TOTAL
     Route: 048
     Dates: start: 20141104, end: 20141104
  4. CYMBALTA [Concomitant]
     Active Substance: DULOXETINE HYDROCHLORIDE
     Indication: PRODUCT USED FOR UNKNOWN INDICATION
     Dosage: 60 MG, UNK
     Route: 048
  5. MIRTAZAPINE. [Suspect]
     Active Substance: MIRTAZAPINE
     Indication: DEPRESSION
     Dosage: UNK
     Route: 048
     Dates: start: 20141014, end: 2014

REACTIONS (4)
  - Poisoning [Recovered/Resolved]
  - Overdose [Recovered/Resolved]
  - Suicidal ideation [Unknown]
  - Drug abuse [Recovered/Resolved]

NARRATIVE: CASE EVENT DATE: 20141104
